FAERS Safety Report 7205122-8 (Version None)
Quarter: 2010Q4

REPORT INFORMATION
  Report Type: 
  Country: None (occurrence: None)
  Receive Date: 20101230
  Receipt Date: 20101221
  Transmission Date: 20110411
  Serious: Yes (Hospitalization)
  Sender: FDA-Public Use
  Company Number: CO-AMGEN-COLSP2010012274

PATIENT

DRUGS (1)
  1. ENBREL [Suspect]
     Indication: PRODUCT USED FOR UNKNOWN INDICATION
     Dosage: 50 MG, WEEKLY
     Route: 064
     Dates: end: 20100213

REACTIONS (3)
  - DRUG EXPOSURE DURING PREGNANCY [None]
  - RESPIRATORY DISORDER [None]
  - URINARY TRACT INFECTION [None]
